FAERS Safety Report 13278912 (Version 1)
Quarter: 2017Q1

REPORT INFORMATION
  Report Type: Spontaneous
  Country: US (occurrence: US)
  Receive Date: 20170228
  Receipt Date: 20170228
  Transmission Date: 20170428
  Serious: No
  Sender: FDA-Public Use
  Company Number: US-IMPAX LABORATORIES, INC-2016-IPXL-00581

PATIENT
  Age: 15 Month
  Sex: Male
  Weight: 10 kg

DRUGS (1)
  1. MEBENDAZOLE. [Suspect]
     Active Substance: MEBENDAZOLE
     Indication: NEMATODIASIS
     Dosage: 100 MG, 2 /DAY
     Route: 065
     Dates: start: 20160519, end: 201605

REACTIONS (1)
  - Abnormal faeces [Not Recovered/Not Resolved]

NARRATIVE: CASE EVENT DATE: 20160519
